FAERS Safety Report 15806102 (Version 1)
Quarter: 2019Q1

REPORT INFORMATION
  Report Type: Spontaneous
  Country: DE (occurrence: DE)
  Receive Date: 20190110
  Receipt Date: 20190110
  Transmission Date: 20190417
  Serious: Yes (Other)
  Sender: FDA-Public Use
  Company Number: DE-JNJFOC-20190102144

PATIENT
  Age: 43 Year
  Sex: Female

DRUGS (2)
  1. REGAINE FRAUEN 2% 3 X 60ML 10 A [Suspect]
     Active Substance: MINOXIDIL
     Route: 061
  2. REGAINE FRAUEN 2% 3 X 60ML 10 A [Suspect]
     Active Substance: MINOXIDIL
     Indication: ALOPECIA
     Route: 061
     Dates: start: 20181223, end: 20181230

REACTIONS (5)
  - Product use in unapproved indication [Unknown]
  - Palpitations [Recovered/Resolved]
  - Feeling abnormal [Recovered/Resolved]
  - Blood pressure decreased [Recovered/Resolved]
  - Respiratory disorder [Recovered/Resolved]

NARRATIVE: CASE EVENT DATE: 201812
